FAERS Safety Report 8339713-8 (Version None)
Quarter: 2012Q2

REPORT INFORMATION
  Report Type: 
  Country: None (occurrence: None)
  Receive Date: 20120507
  Receipt Date: 20120426
  Transmission Date: 20120825
  Serious: Yes (Other)
  Sender: FDA-Public Use
  Company Number: PHHY2012ES035535

PATIENT
  Age: 51 Year
  Sex: Female

DRUGS (2)
  1. OXCARBAZEPINE [Interacting]
     Indication: CHRONIC OBSTRUCTIVE PULMONARY DISEASE
     Dates: start: 20090909
  2. HIROBRIZ BREEZHALER [Suspect]
     Dates: start: 20120229

REACTIONS (6)
  - HYPERHIDROSIS [None]
  - ERYTHEMA [None]
  - DYSPNOEA [None]
  - PALPITATIONS [None]
  - ANXIETY [None]
  - DRUG INTERACTION [None]
